FAERS Safety Report 5602761-2 (Version None)
Quarter: 2008Q1

REPORT INFORMATION
  Report Type: 
  Country: None (occurrence: None)
  Receive Date: 20080125
  Receipt Date: 20080114
  Transmission Date: 20080703
  Serious: Yes (Other)
  Sender: FDA-Public Use
  Company Number: PHBS2006SE19988

PATIENT
  Age: 24 Year
  Sex: Female

DRUGS (1)
  1. GLEEVEC [Suspect]
     Dosage: FOETAL DRUG EXPOSURE VIA FATHER

REACTIONS (3)
  - INTRA-UTERINE DEATH [None]
  - TRANSMISSION OF DRUG VIA SEMEN [None]
  - TWIN PREGNANCY [None]
